FAERS Safety Report 22291465 (Version 1)
Quarter: 2023Q2

REPORT INFORMATION
  Report Type: Report from Study
  Country: IT (occurrence: IT)
  Receive Date: 20230506
  Receipt Date: 20230506
  Transmission Date: 20230721
  Serious: Yes (Hospitalization, Other)
  Sender: FDA-Public Use
  Company Number: None

PATIENT
  Age: 12 Year
  Sex: Female
  Weight: 40 kg

DRUGS (3)
  1. VINCRISTINE [Suspect]
     Active Substance: VINCRISTINE
     Indication: Ewing^s sarcoma
     Dosage: 1.9 MILLIGRAM DAILY; 1.9 MG/DAY
     Route: 065
     Dates: start: 20230321, end: 20230321
  2. DOXORUBICIN [Suspect]
     Active Substance: DOXORUBICIN
     Indication: Ewing^s sarcoma
     Dosage: 100 MILLIGRAM DAILY; 100 MG/DAY
     Route: 065
     Dates: start: 20230321, end: 20230321
  3. CYCLOPHOSPHAMIDE [Suspect]
     Active Substance: CYCLOPHOSPHAMIDE
     Indication: Ewing^s sarcoma
     Dosage: 1530 MILLIGRAM DAILY; 1530 MG/DAY
     Route: 065
     Dates: start: 20230321, end: 20230321

REACTIONS (6)
  - Febrile neutropenia [Recovered/Resolved]
  - Pancytopenia [Not Recovered/Not Resolved]
  - Anaemia [Recovering/Resolving]
  - Nausea [Recovered/Resolved]
  - Stomatitis [Recovered/Resolved]
  - Proctalgia [Recovering/Resolving]

NARRATIVE: CASE EVENT DATE: 20230323
